FAERS Safety Report 4307831-7 (Version None)
Quarter: 2004Q1

REPORT INFORMATION
  Report Type: 
  Country: None (occurrence: None)
  Receive Date: 20040226
  Receipt Date: 20030114
  Transmission Date: 20041129
  Serious: Yes (Disabling)
  Sender: FDA-Public Use
  Company Number: 2003142083US

PATIENT
  Age: 54 Year
  Sex: Female

DRUGS (6)
  1. CELEBREX [Suspect]
     Dosage: 200 MG, QD, ORAL
     Route: 048
     Dates: start: 20020108
  2. HYDROCHLOROTHIAZIDE [Concomitant]
  3. ESTRACE [Concomitant]
  4. ZESTRIL [Concomitant]
  5. ZANTAC [Concomitant]
  6. CALCIUM WITH VITAMIN D [Concomitant]

REACTIONS (1)
  - DEAFNESS [None]
